FAERS Safety Report 17455013 (Version 1)
Quarter: 2020Q1

REPORT INFORMATION
  Report Type: Spontaneous
  Country: US (occurrence: US)
  Receive Date: 20200211
  Receipt Date: 20200211
  Transmission Date: 20200409
  Serious: Yes (Other)
  Sender: FDA-Public Use
  Company Number: None

PATIENT
  Age: 34 Year
  Sex: Female
  Weight: 54.43 kg

DRUGS (1)
  1. LAMOTRIGINE. [Suspect]
     Active Substance: LAMOTRIGINE
     Indication: AFFECTIVE DISORDER
     Dosage: ?          QUANTITY:90 DF DOSAGE FORM;OTHER FREQUENCY:1/2 TABLET ;?
     Route: 048
     Dates: start: 20200108, end: 20200201

REACTIONS (5)
  - Hypotension [None]
  - Fatigue [None]
  - Abdominal pain upper [None]
  - Headache [None]
  - Dehydration [None]

NARRATIVE: CASE EVENT DATE: 20200125
